FAERS Safety Report 9216389 (Version 1)
Quarter: 2013Q2

REPORT INFORMATION
  Report Type: Spontaneous
  Country: GB (occurrence: None)
  Receive Date: 20130403
  Receipt Date: 20130403
  Transmission Date: 20140414
  Serious: Yes (Congenital Anomaly, Other)
  Sender: FDA-Public Use
  Company Number: GER/GER/13/0028833

PATIENT
  Sex: 0
  Weight: .25 kg

DRUGS (9)
  1. LAMOTRIGINE (LAMOTRIGINE) [Suspect]
     Indication: PRODUCT USED FOR UNKNOWN INDICATION
     Dosage: 50-300 MG/DAY, TRANSPLACENTAL??
     Route: 064
     Dates: start: 20080922, end: 20090206
  2. ERGENYL CHRONO [Suspect]
     Indication: PRODUCT USED FOR UNKNOWN INDICATION
     Route: 064
     Dates: start: 20080922, end: 20081231
  3. KEPPRA [Suspect]
     Indication: PRODUCT USED FOR UNKNOWN INDICATION
     Route: 064
     Dates: start: 20080922, end: 20090213
  4. PHENYDAN [Suspect]
     Indication: PRODUCT USED FOR UNKNOWN INDICATION
     Route: 064
     Dates: start: 20080922, end: 20090213
  5. FRISIUM [Suspect]
     Indication: PRODUCT USED FOR UNKNOWN INDICATION
     Route: 064
     Dates: start: 20080922, end: 20090213
  6. LUMINAL [Suspect]
     Indication: PRODUCT USED FOR UNKNOWN INDICATION
     Route: 064
     Dates: start: 20080922, end: 20090213
  7. TAVOR [Suspect]
     Indication: PRODUCT USED FOR UNKNOWN INDICATION
     Dosage: TRANSPLACENTAL
  8. VIMPAT (LACOSAMIDE) [Concomitant]
  9. THYROXIN (LEVOTHYROXINE SODIUM) [Concomitant]

REACTIONS (8)
  - Spina bifida [None]
  - Limb malformation [None]
  - Foetal growth restriction [None]
  - Microcephaly [None]
  - Cleft lip and palate [None]
  - Brain malformation [None]
  - Maternal drugs affecting foetus [None]
  - Abortion induced [None]
